FAERS Safety Report 6593092-5 (Version None)
Quarter: 2010Q1

REPORT INFORMATION
  Report Type: 
  Country: None (occurrence: None)
  Receive Date: 20100212
  Receipt Date: 20100129
  Transmission Date: 20100710
  Serious: Yes (Death)
  Sender: FDA-Public Use
  Company Number: TCI2010A00339

PATIENT
  Age: 27 Year
  Sex: Male

DRUGS (2)
  1. ACTOS [Suspect]
     Indication: DIABETES MELLITUS
     Dosage: 15 MG (15 MG, 1 IN 1 D) PER ORAL
     Route: 048
     Dates: start: 20070808, end: 20091117
  2. METFORMIN HYDROCHLORIDE [Suspect]
     Indication: DIABETES MELLITUS
     Dosage: 5 MG (2.5 MG, 2 IN 1 D) PER ORAL
     Route: 048
     Dates: start: 20070808, end: 20100113

REACTIONS (8)
  - CARDIO-RESPIRATORY ARREST [None]
  - COUGH [None]
  - OBSTRUCTIVE AIRWAYS DISORDER [None]
  - PNEUMONIA BACTERIAL [None]
  - PYREXIA [None]
  - RESPIRATORY FAILURE [None]
  - SPUTUM INCREASED [None]
  - SUDDEN DEATH [None]
